FAERS Safety Report 4935129-2 (Version None)
Quarter: 2006Q1

REPORT INFORMATION
  Report Type: 
  Country: None (occurrence: None)
  Receive Date: 20060302
  Receipt Date: 20060221
  Transmission Date: 20060701
  Serious: Yes (Other)
  Sender: FDA-Public Use
  Company Number: 2006026049

PATIENT
  Age: 60 Year
  Sex: Male

DRUGS (14)
  1. TIKOSYN [Suspect]
     Indication: ATRIAL FIBRILLATION
     Dosage: 0.5 MG (0.25 MG, 2 IN 1 D)
  2. COLCHICINE [Concomitant]
  3. INDOCIN [Concomitant]
  4. ECOTRIN (ACETYLSALICYLIC ACID) [Concomitant]
  5. ZOCOR [Concomitant]
  6. ACCUPRIL [Concomitant]
  7. LASIX [Concomitant]
  8. GLUCOPHAGE [Concomitant]
  9. AMARYL [Concomitant]
  10. COUMADIN [Concomitant]
  11. LANOXIN [Concomitant]
  12. ACIPHEX [Concomitant]
  13. VERAPAMIL [Concomitant]
  14. MULTIVITAMIN (ASCORBIC ACID, ERGOCALCIFEROL, FOLIC ACID, NICOTINAMIDE, [Concomitant]

REACTIONS (2)
  - INFLUENZA LIKE ILLNESS [None]
  - RENAL FAILURE [None]
